FAERS Safety Report 21504339 (Version 1)
Quarter: 2022Q4

REPORT INFORMATION
  Report Type: Spontaneous
  Country: CN (occurrence: CN)
  Receive Date: 20221025
  Receipt Date: 20221025
  Transmission Date: 20230113
  Serious: Yes (Other)
  Sender: FDA-Public Use
  Company Number: None

PATIENT
  Age: 54 Year
  Sex: Female
  Weight: 59 kg

DRUGS (2)
  1. CYCLOPHOSPHAMIDE [Suspect]
     Active Substance: CYCLOPHOSPHAMIDE
     Indication: Breast cancer female
     Dosage: AT 07:45, 0.9 G, QD, INJECTION, DILUTED WITH  250 ML OF 0.9 % SODIUM CHLORIDE, AT A RATE OF ABOUT 20
     Route: 041
     Dates: start: 20220914, end: 20220915
  2. SODIUM CHLORIDE [Suspect]
     Active Substance: SODIUM CHLORIDE
     Indication: Medication dilution
     Dosage: AT 07:45, 250 ML, QD (INJECTION) USED TO DILUTE 0.9G CYCLOPHOSPHAMIDE, AT A RATE OF ABOUT 20 DROPS/M
     Route: 041
     Dates: start: 20220914, end: 20220915

REACTIONS (1)
  - White blood cell count decreased [Unknown]

NARRATIVE: CASE EVENT DATE: 20220915
